FAERS Safety Report 21749357 (Version 1)
Quarter: 2022Q4

REPORT INFORMATION
  Report Type: Spontaneous
  Country: FR (occurrence: FR)
  Receive Date: 20221219
  Receipt Date: 20221219
  Transmission Date: 20230112
  Serious: Yes (Hospitalization)
  Sender: FDA-Public Use
  Company Number: None

PATIENT
  Age: 65 Year
  Sex: Female
  Weight: 97 kg

DRUGS (2)
  1. PAXLOVID [Suspect]
     Active Substance: NIRMATRELVIR\RITONAVIR
     Indication: Coronavirus infection
     Route: 048
     Dates: start: 20221015, end: 20221020
  2. PROGRAF [Suspect]
     Active Substance: TACROLIMUS
     Indication: Transplant rejection
     Dosage: 6 MG, 1X/DAY
     Route: 048
     Dates: start: 2022, end: 20221024

REACTIONS (2)
  - Acute kidney injury [Recovered/Resolved]
  - Immunosuppressant drug level [Recovered/Resolved]

NARRATIVE: CASE EVENT DATE: 20221024
